FAERS Safety Report 14026528 (Version 1)
Quarter: 2017Q3

REPORT INFORMATION
  Report Type: Spontaneous
  Country: BR (occurrence: BR)
  Receive Date: 20170929
  Receipt Date: 20170929
  Transmission Date: 20171128
  Serious: Yes (Other)
  Sender: FDA-Public Use
  Company Number: BR-ALEXION-A201707630

PATIENT
  Age: 23 Year
  Sex: Male
  Weight: 56.4 kg

DRUGS (4)
  1. SOLIRIS [Suspect]
     Active Substance: ECULIZUMAB
     Indication: HAEMOLYTIC URAEMIC SYNDROME
     Dosage: UNK
     Route: 042
     Dates: start: 20140527
  2. SOLIRIS [Suspect]
     Active Substance: ECULIZUMAB
     Dosage: 1200 MG, UNK
     Route: 065
  3. SOLIRIS [Suspect]
     Active Substance: ECULIZUMAB
     Dosage: 900 MG, UNK
     Route: 065
     Dates: start: 201406
  4. CLAVULIN DUO [Concomitant]
     Active Substance: AMOXICILLIN\CLAVULANIC ACID
     Indication: PROPHYLAXIS
     Dosage: UNK
     Route: 065

REACTIONS (8)
  - Radius fracture [Unknown]
  - Anaemia [Recovering/Resolving]
  - Road traffic accident [Recovered/Resolved]
  - Acne [Unknown]
  - Haemolytic anaemia [Unknown]
  - Haemolysis [Unknown]
  - Hypertension [Unknown]
  - Nephropathy [Unknown]

NARRATIVE: CASE EVENT DATE: 201703
